FAERS Safety Report 4993588-3 (Version None)
Quarter: 2006Q2

REPORT INFORMATION
  Report Type: 
  Country: None (occurrence: None)
  Receive Date: 20060504
  Receipt Date: 20060504
  Transmission Date: 20061013
  Serious: No
  Sender: FDA-Public Use
  Company Number: None

PATIENT
  Sex: Female
  Weight: 52.6173 kg

DRUGS (1)
  1. FOSAMAX [Suspect]

REACTIONS (3)
  - ACETABULUM FRACTURE [None]
  - FEMUR FRACTURE [None]
  - IMPAIRED HEALING [None]
